FAERS Safety Report 23769305 (Version 1)
Quarter: 2024Q2

REPORT INFORMATION
  Report Type: Spontaneous
  Country: CA (occurrence: CA)
  Receive Date: 20240422
  Receipt Date: 20240422
  Transmission Date: 20240716
  Serious: Yes (Other)
  Sender: FDA-Public Use
  Company Number: CA-BRISTOL-MYERS SQUIBB COMPANY-2024-060671

PATIENT
  Age: 63 Year
  Sex: Male
  Weight: 96 kg

DRUGS (6)
  1. OPDIVO [Suspect]
     Active Substance: NIVOLUMAB
     Indication: Metastatic malignant melanoma
     Route: 042
     Dates: start: 202309, end: 202403
  2. OPDIVO [Suspect]
     Active Substance: NIVOLUMAB
     Route: 042
     Dates: start: 20240411
  3. LAMOTRIGINE [Concomitant]
     Active Substance: LAMOTRIGINE
     Dosage: 25MG IN THE AM AND 25MG EVENING
  4. PAROXETINE [Concomitant]
     Active Substance: PAROXETINE
     Dosage: HALF TABLET AM AND HALF TABLET EVENING
  5. CARBAMAZEPINE [Concomitant]
     Active Substance: CARBAMAZEPINE
     Dosage: 2 TABS [400MG] IN THE AM AND 2 TABS [400MG] EVENING
     Dates: start: 200012
  6. WARFARIN [Concomitant]
     Active Substance: WARFARIN
     Dosage: DOSAGE VARIES DEPENDING ON INR LEVEL] - CURRENT DOSE IS 8 MG A DAY, EXCEPT SATURDAY HE GETS 7MG

REACTIONS (3)
  - Gastrointestinal motility disorder [Recovered/Resolved]
  - Flatulence [Recovered/Resolved]
  - Haematochezia [Recovered/Resolved]

NARRATIVE: CASE EVENT DATE: 20240201
